FAERS Safety Report 5604426-X (Version None)
Quarter: 2008Q1

REPORT INFORMATION
  Report Type: 
  Country: None (occurrence: None)
  Receive Date: 20080128
  Receipt Date: 20080122
  Transmission Date: 20080703
  Serious: Yes (Hospitalization)
  Sender: FDA-Public Use
  Company Number: FR-JNJFOC-20080103706

PATIENT
  Age: 68 Year
  Sex: Female

DRUGS (9)
  1. IBUPROFEN [Suspect]
     Indication: PAIN
  2. IBUPROFEN [Suspect]
     Indication: CHILLS
  3. IBUPROFEN [Suspect]
     Indication: MALAISE
     Dosage: 2-3 TABLETS EVERY FOUR TO FIVE HOURS FOR 2 WEEKS
  4. HYDROCHLOROTHIAZIDE [Concomitant]
  5. CONJUGATED ESTROGENS [Concomitant]
  6. ASPIRIN [Concomitant]
  7. MULTI-VITAMIN [Concomitant]
  8. NEBULIZERS [Concomitant]
  9. CETIRIZINE HCL [Concomitant]

REACTIONS (3)
  - GLOMERULONEPHRITIS MINIMAL LESION [None]
  - NEPHRITIS INTERSTITIAL [None]
  - NEPHROTIC SYNDROME [None]
